FAERS Safety Report 8471885-7 (Version None)
Quarter: 2012Q2

REPORT INFORMATION
  Report Type: 
  Country: None (occurrence: None)
  Receive Date: 20120627
  Receipt Date: 20120618
  Transmission Date: 20120825
  Serious: Yes (Other)
  Sender: FDA-Public Use
  Company Number: CH-JNJFOC-20120608686

PATIENT
  Age: 7 Decade
  Sex: Male

DRUGS (1)
  1. NICORETTE [Suspect]
     Indication: PRODUCT USED FOR UNKNOWN INDICATION
     Route: 048
     Dates: start: 20040101

REACTIONS (3)
  - NICOTINE DEPENDENCE [None]
  - INCORRECT DRUG ADMINISTRATION DURATION [None]
  - TREMOR [None]
